FAERS Safety Report 10237187 (Version 2)
Quarter: 2014Q2

REPORT INFORMATION
  Report Type: Report from Study
  Country: GB (occurrence: GB)
  Receive Date: 20140613
  Receipt Date: 20140625
  Transmission Date: 20141212
  Serious: Yes (Other)
  Sender: FDA-Public Use
  Company Number: GB-ROCHE-1417339

PATIENT
  Age: 41 Year
  Sex: Female

DRUGS (4)
  1. AVASTIN [Suspect]
     Indication: BREAST CANCER METASTATIC
     Route: 065
  2. XELODA [Suspect]
     Indication: BREAST CANCER METASTATIC
     Route: 065
  3. ZOMETA [Suspect]
     Indication: BREAST CANCER METASTATIC
     Route: 065
  4. THYROXINE [Concomitant]
     Route: 065

REACTIONS (6)
  - Abdominal pain upper [Unknown]
  - Upper respiratory tract infection [Unknown]
  - Palmar-plantar erythrodysaesthesia syndrome [Unknown]
  - Disease progression [Unknown]
  - Hepatic function abnormal [Unknown]
  - Fatigue [Unknown]
